FAERS Safety Report 7793513-6 (Version None)
Quarter: 2011Q4

REPORT INFORMATION
  Report Type: 
  Country: None (occurrence: None)
  Receive Date: 20111003
  Receipt Date: 20110922
  Transmission Date: 20120403
  Serious: Yes (Death)
  Sender: FDA-Public Use
  Company Number: DE-BAXTER-2011BH030313

PATIENT
  Age: 85 Year
  Sex: Male
  Weight: 70 kg

DRUGS (4)
  1. OCTAGAM [Suspect]
     Indication: IMMUNOGLOBULIN THERAPY
     Route: 065
     Dates: start: 20110922
  2. GAMMAGARD S/D [Suspect]
     Indication: IMMUNOGLOBULIN THERAPY
     Route: 042
     Dates: start: 20110922
  3. METHYLPREDNISOLONE [Concomitant]
     Indication: PREMEDICATION
     Route: 065
  4. GAMMAGARD LIQUID [Suspect]
     Indication: IMMUNOGLOBULIN THERAPY
     Route: 042
     Dates: start: 20110801, end: 20110922

REACTIONS (8)
  - LOSS OF CONSCIOUSNESS [None]
  - CHILLS [None]
  - CHEST PAIN [None]
  - MALAISE [None]
  - VENTRICULAR FIBRILLATION [None]
  - VISION BLURRED [None]
  - DIZZINESS [None]
  - HEADACHE [None]
